FAERS Safety Report 14265142 (Version 1)
Quarter: 2017Q4

REPORT INFORMATION
  Report Type: Spontaneous
  Country: GB (occurrence: GB)
  Receive Date: 20171208
  Receipt Date: 20171208
  Transmission Date: 20180321
  Serious: Yes (Other)
  Sender: FDA-Public Use
  Company Number: GB-SA-2017SA240353

PATIENT
  Sex: Female

DRUGS (13)
  1. LANSOPRAZOLE. [Suspect]
     Active Substance: LANSOPRAZOLE
     Route: 048
  2. PERINDOPRIL [Suspect]
     Active Substance: PERINDOPRIL
     Route: 065
  3. CLOPIDOGREL BISULFATE. [Suspect]
     Active Substance: CLOPIDOGREL BISULFATE
     Route: 048
  4. FULTIUM-D3 [Suspect]
     Active Substance: CHOLECALCIFEROL
     Route: 065
  5. FABRAZYME [Suspect]
     Active Substance: AGALSIDASE BETA
     Dosage: 50MG (GIVEN AS 35MG + 15MG), FORTNIGHTLY,?DOSE 50MG
     Route: 041
     Dates: end: 20170420
  6. FABRAZYME [Suspect]
     Active Substance: AGALSIDASE BETA
     Dosage: 50MG (GIVEN AS 35MG + 15MG), FORTNIGHTLY,?DOSE 50MG
     Route: 041
     Dates: end: 20170420
  7. SALBUTAMOL [Suspect]
     Active Substance: ALBUTEROL
     Route: 055
  8. NEBIVOLOL. [Suspect]
     Active Substance: NEBIVOLOL
     Route: 065
  9. CITALOPRAM [Suspect]
     Active Substance: CITALOPRAM HYDROBROMIDE
     Route: 048
  10. ACETYLSALICYLIC ACID [Suspect]
     Active Substance: ASPIRIN
     Route: 065
  11. LYRICA [Suspect]
     Active Substance: PREGABALIN
     Route: 065
  12. AMIODARONE HYDROCHLORIDE. [Suspect]
     Active Substance: AMIODARONE HYDROCHLORIDE
     Route: 065
  13. COCODAMOL [Suspect]
     Active Substance: ACETAMINOPHEN\CODEINE PHOSPHATE
     Dosage: DOSE-30/500 MG
     Route: 048

REACTIONS (3)
  - Lower respiratory tract infection [Unknown]
  - Wheezing [Unknown]
  - Cough [Recovered/Resolved]
